FAERS Safety Report 10229481 (Version 3)
Quarter: 2014Q2

REPORT INFORMATION
  Report Type: Spontaneous
  Country: US (occurrence: US)
  Receive Date: 20140611
  Receipt Date: 20140626
  Transmission Date: 20141212
  Serious: Yes (Other)
  Sender: FDA-Public Use
  Company Number: US-009507513-1406USA004234

PATIENT
  Age: 52 Year
  Sex: Male
  Weight: 101.59 kg

DRUGS (1)
  1. EMEND [Suspect]
     Indication: PROPHYLAXIS OF NAUSEA AND VOMITING
     Dosage: TOTAL DAILY DOSE REPORTED AS 150(UNITS NOT PROVIDED)
     Route: 042
     Dates: start: 20140225, end: 20140225

REACTIONS (7)
  - Chest pain [Recovered/Resolved]
  - Paraesthesia [Recovered/Resolved]
  - Chest discomfort [Recovered/Resolved]
  - Flushing [Recovered/Resolved]
  - Dyspnoea [Recovered/Resolved]
  - Hyperhidrosis [Recovered/Resolved]
  - Erythema [Recovered/Resolved]
